FAERS Safety Report 16988481 (Version 1)
Quarter: 2019Q4

REPORT INFORMATION
  Report Type: Spontaneous
  Country: US (occurrence: US)
  Receive Date: 20191104
  Receipt Date: 20191104
  Transmission Date: 20200122
  Serious: No
  Sender: FDA-Public Use
  Company Number: US-BAYER-2019-198177

PATIENT
  Age: 81 Year
  Sex: Female
  Weight: 53 kg

DRUGS (1)
  1. MIRALAX [Suspect]
     Active Substance: POLYETHYLENE GLYCOL 3350
     Dosage: 17 G
     Route: 048
     Dates: end: 201910

REACTIONS (2)
  - Faeces soft [Unknown]
  - Therapeutic product effect delayed [Unknown]
